FAERS Safety Report 12399226 (Version 2)
Quarter: 2016Q2

REPORT INFORMATION
  Report Type: Spontaneous
  Country: US (occurrence: US)
  Receive Date: 20160524
  Receipt Date: 20160524
  Transmission Date: 20160815
  Serious: Yes (Other)
  Sender: FDA-Public Use
  Company Number: US-SA-2016SA095866

PATIENT
  Sex: Male

DRUGS (4)
  1. LANTUS SOLOSTAR [Suspect]
     Active Substance: INSULIN GLARGINE
     Indication: TYPE 2 DIABETES MELLITUS
     Dosage: DOSE:15 UNIT(S)
     Route: 065
  2. SOLOSTAR [Concomitant]
     Active Substance: DEVICE
     Indication: TYPE 2 DIABETES MELLITUS
     Dates: start: 2014
  3. LANTUS SOLOSTAR [Suspect]
     Active Substance: INSULIN GLARGINE
     Indication: TYPE 2 DIABETES MELLITUS
     Dosage: DOSE:15 UNIT(S)
     Route: 065
     Dates: start: 2014
  4. SOLOSTAR [Concomitant]
     Active Substance: DEVICE
     Indication: TYPE 2 DIABETES MELLITUS

REACTIONS (6)
  - Visual impairment [Unknown]
  - Drug dose omission [Unknown]
  - Cardiac disorder [Unknown]
  - Vertigo [Unknown]
  - Arthropathy [Unknown]
  - Feeling abnormal [Recovering/Resolving]

NARRATIVE: CASE EVENT DATE: 2015
